FAERS Safety Report 19544075 (Version 1)
Quarter: 2021Q3

REPORT INFORMATION
  Report Type: Spontaneous
  Country: DE (occurrence: DE)
  Receive Date: 20210713
  Receipt Date: 20210713
  Transmission Date: 20211014
  Serious: Yes (Hospitalization, Other)
  Sender: FDA-Public Use
  Company Number: DE-PFIZER INC-2021795422

PATIENT
  Age: 58 Year
  Sex: Female
  Weight: 80 kg

DRUGS (1)
  1. ESTRADIOL. [Suspect]
     Active Substance: ESTRADIOL

REACTIONS (2)
  - Dyspnoea [Unknown]
  - Pulmonary embolism [Unknown]
